FAERS Safety Report 21736961 (Version 3)
Quarter: 2024Q1

REPORT INFORMATION
  Report Type: Report from Study
  Country: US (occurrence: US)
  Receive Date: 20221216
  Receipt Date: 20240209
  Transmission Date: 20240410
  Serious: Yes (Other)
  Sender: FDA-Public Use
  Company Number: US-Merck Healthcare KGaA-9372654

PATIENT
  Sex: Female

DRUGS (2)
  1. REBIF [Suspect]
     Active Substance: INTERFERON BETA-1A
     Indication: Multiple sclerosis
     Dosage: REBIJECT II/MANUAL
     Route: 058
     Dates: start: 20170416
  2. REBIF [Suspect]
     Active Substance: INTERFERON BETA-1A

REACTIONS (15)
  - Dehydration [Unknown]
  - Multiple sclerosis relapse [Unknown]
  - Dyspnoea [Unknown]
  - Hypoaesthesia [Unknown]
  - Diaphragmalgia [Unknown]
  - Bone pain [Unknown]
  - Abdominal pain upper [Unknown]
  - Gastrointestinal disorder [Unknown]
  - Back pain [Unknown]
  - Chest pain [Unknown]
  - Weight decreased [Unknown]
  - Feeding disorder [Unknown]
  - Abdominal distension [Unknown]
  - Hepatic steatosis [Unknown]
  - Mobility decreased [Unknown]
